FAERS Safety Report 8048642-9 (Version None)
Quarter: 2012Q1

REPORT INFORMATION
  Report Type: 
  Country: None (occurrence: None)
  Receive Date: 20120110
  Receipt Date: 20120105
  Transmission Date: 20120608
  Serious: Yes (Death, Other)
  Sender: FDA-Public Use
  Company Number: GER/UKI/11/0019173

PATIENT
  Age: 21 Year
  Sex: Male
  Weight: 120 kg

DRUGS (3)
  1. FLUOXETINE [Suspect]
     Indication: OBSESSIVE-COMPULSIVE DISORDER
     Dosage: 60 MG, 1 IN 1 D, ORAL
     Route: 048
     Dates: start: 20091101, end: 20110705
  2. PREGABALIN [Suspect]
     Indication: OBSESSIVE-COMPULSIVE DISORDER
     Dosage: 225 MG, 2 IN 1 D, ORAL
     Route: 048
     Dates: start: 20091101, end: 20110705
  3. QUETIAPINE [Suspect]
     Indication: OBSESSIVE-COMPULSIVE DISORDER
     Dosage: 800 MG, 1 IN 1 D, ORAL
     Route: 048
     Dates: start: 20091101, end: 20110705

REACTIONS (24)
  - SEPTIC SHOCK [None]
  - GASTRIC HAEMORRHAGE [None]
  - AORTIC DISORDER [None]
  - RHABDOMYOLYSIS [None]
  - SYSTEMIC INFLAMMATORY RESPONSE SYNDROME [None]
  - PULMONARY CONGESTION [None]
  - OBESITY [None]
  - HYPERPYREXIA [None]
  - MULTI-ORGAN FAILURE [None]
  - INFECTIOUS PERITONITIS [None]
  - PURULENCE [None]
  - PLEURAL EFFUSION [None]
  - ABDOMINAL PAIN [None]
  - VOMITING [None]
  - PANCREATITIS NECROTISING [None]
  - ARTERIOSCLEROSIS CORONARY ARTERY [None]
  - ARTERIAL THROMBOSIS [None]
  - ACUTE ABDOMEN [None]
  - NO THERAPEUTIC RESPONSE [None]
  - PULMONARY OEDEMA [None]
  - HEPATIC CONGESTION [None]
  - GALLBLADDER DISORDER [None]
  - PANCREATITIS HAEMORRHAGIC [None]
  - CATHETER SITE DISCHARGE [None]
